FAERS Safety Report 17452768 (Version 2)
Quarter: 2020Q1

REPORT INFORMATION
  Report Type: Spontaneous
  Country: FR (occurrence: FR)
  Receive Date: 20200224
  Receipt Date: 20200227
  Transmission Date: 20200409
  Serious: Yes (Hospitalization)
  Sender: FDA-Public Use
  Company Number: FR-MYLANLABS-2020M1018787

PATIENT
  Age: 91 Year
  Sex: Female
  Weight: 64 kg

DRUGS (12)
  1. CYAMEMAZINE TARTRATE [Suspect]
     Active Substance: CYAMEMAZINE
     Indication: PRODUCT USED FOR UNKNOWN INDICATION
     Dosage: 15 DROP, QD
     Route: 048
     Dates: start: 20180413
  2. MONTELUKAST [Concomitant]
     Active Substance: MONTELUKAST SODIUM
     Indication: CHRONIC RESPIRATORY FAILURE
     Dosage: 10 MILLIGRAM, QD
     Route: 048
     Dates: start: 20171213
  3. KARDEGIC [Concomitant]
     Active Substance: ASPIRIN DL-LYSINE
     Indication: CARDIOVASCULAR DISORDER
     Dosage: 160 MILLIGRAM, QD(1 LEM IDI)
     Route: 048
  4. INNOVAIR [Suspect]
     Active Substance: BECLOMETHASONE DIPROPIONATE\FORMOTEROL
     Indication: BRONCHOSPASM
     Dosage: 2 BOUFF?ES MATIN ET SOIR
     Route: 055
     Dates: start: 20191121, end: 20191231
  5. MACROGOL 4000 [Concomitant]
     Active Substance: POLYETHYLENE GLYCOL 4000
     Indication: CONSTIPATION
     Dosage: 1 DOSAGE FORM, QOD(1 LE MATIN, 1 JOUR SUR 2)
     Route: 048
  6. BISOPROLOL [Concomitant]
     Active Substance: BISOPROLOL
     Indication: CARDIOVASCULAR DISORDER
     Dosage: 2.5 MILLIGRAM, QD(2 LE SOIR)
     Route: 048
  7. ZOPICLONE [Suspect]
     Active Substance: ZOPICLONE
     Indication: PRODUCT USED FOR UNKNOWN INDICATION
     Dosage: 3.75 MILLIGRAM, QD
     Route: 048
     Dates: start: 20190522
  8. NICARDIPINE                        /00639802/ [Concomitant]
     Active Substance: NICARDIPINE HYDROCHLORIDE
     Indication: HYPERTENSION
     Dosage: 40 MILLIGRAM, QD(1 MATIN ET SOIR)
     Route: 048
  9. SALBUTAMOL [Concomitant]
     Active Substance: ALBUTEROL
     Indication: CHRONIC RESPIRATORY FAILURE
     Dosage: 400 MICROGRAM, QD(1-1-1-1)
     Route: 055
  10. PARACETAMOL [Concomitant]
     Active Substance: ACETAMINOPHEN
     Indication: PRODUCT USED FOR UNKNOWN INDICATION
     Dosage: 6 DOSAGE FORM, QD(2-2-2)
     Route: 048
  11. ALPRAZOLAM. [Suspect]
     Active Substance: ALPRAZOLAM
     Indication: PRODUCT USED FOR UNKNOWN INDICATION
     Dosage: 0.5 MILLIGRAM, QD(1 LE MATIN ET LE MIDI)
     Route: 048
     Dates: start: 20180413
  12. ESOMEPRAZOLE. [Concomitant]
     Active Substance: ESOMEPRAZOLE MAGNESIUM
     Indication: PRODUCT USED FOR UNKNOWN INDICATION
     Dosage: 10 MILLIGRAM, QD
     Route: 048
     Dates: start: 20180413

REACTIONS (3)
  - Fall [Recovered/Resolved]
  - Confusional state [Recovered/Resolved]
  - Condition aggravated [Recovered/Resolved]

NARRATIVE: CASE EVENT DATE: 20191122
